FAERS Safety Report 7031430-X (Version None)
Quarter: 2010Q4

REPORT INFORMATION
  Report Type: 
  Country: None (occurrence: None)
  Receive Date: 20101006
  Receipt Date: 20100921
  Transmission Date: 20110411
  Serious: Yes (Hospitalization, Other)
  Sender: FDA-Public Use
  Company Number: PHEH2008US08911

PATIENT
  Sex: Female
  Weight: 80.5 kg

DRUGS (28)
  1. AREDIA [Suspect]
     Dosage: 90 MG, QMO
     Dates: start: 19990101
  2. HERCEPTIN [Concomitant]
     Dosage: 440MG
  3. ENOXAPARIN SODIUM [Concomitant]
     Dosage: 40MG
  4. PEPCID [Concomitant]
     Dosage: 20MG
  5. ZESTRIL [Concomitant]
     Dosage: 10MG
  6. DEXAMETHASONE [Concomitant]
     Dosage: 4MG
     Route: 048
  7. ARIMIDEX [Concomitant]
     Dosage: 1 MG
  8. LISINOPRIL [Concomitant]
  9. RADIATION THERAPY [Concomitant]
     Dosage: UNK
  10. CIPROFLOXACIN [Concomitant]
  11. CEPHALEXIN [Concomitant]
  12. CELEBREX [Concomitant]
  13. HERCEPTIN [Concomitant]
     Dosage: UNK, ONCE A WEEK
  14. DILAUDID [Concomitant]
     Indication: PAIN
     Dosage: UNK, AS NEEDED
  15. ZOSYN [Concomitant]
  16. LOTREL [Concomitant]
     Dosage: UNK,
  17. DEMEROL [Concomitant]
  18. RESTORIL [Concomitant]
  19. HYDROMORPHONE HCL [Concomitant]
     Dosage: 2 MG/ML
  20. ALBUTEROL [Concomitant]
     Dosage: 2.5MG
  21. AMITRIPTYLINE [Concomitant]
     Dosage: 50MG,
  22. PRINIVIL [Concomitant]
     Dosage: UNK, DAILY
  23. LOTENSIN [Concomitant]
     Dosage: 40 MG, DAILY
  24. NORVASC [Concomitant]
     Dosage: 5MG, DAILY
  25. ARIMIDEX [Concomitant]
     Dosage: 1 MG, DAILY
  26. ELAVIL [Concomitant]
     Dosage: 100MG,
  27. MILK OF MAGNESIA TAB [Concomitant]
  28. COLACE [Concomitant]

REACTIONS (61)
  - ACTINOMYCOSIS [None]
  - ANAEMIA [None]
  - ANHEDONIA [None]
  - ANKLE FRACTURE [None]
  - ANXIETY [None]
  - ARTHRITIS [None]
  - ARTIFICIAL CROWN PROCEDURE [None]
  - ASTHMA [None]
  - BACK PAIN [None]
  - BONE FRAGMENTATION [None]
  - BRONCHITIS [None]
  - CHEST PAIN [None]
  - CHRONIC OBSTRUCTIVE PULMONARY DISEASE [None]
  - CHRONIC SINUSITIS [None]
  - COLITIS [None]
  - COLON ADENOMA [None]
  - DEEP VEIN THROMBOSIS [None]
  - DENTAL PROSTHESIS USER [None]
  - DIARRHOEA [None]
  - DISABILITY [None]
  - DYSPHONIA [None]
  - ECCHYMOSIS [None]
  - FLANK PAIN [None]
  - GINGIVAL ULCERATION [None]
  - GINGIVITIS [None]
  - HAEMANGIOMA [None]
  - HIATUS HERNIA [None]
  - IMMUNE SYSTEM DISORDER [None]
  - IMPAIRED HEALING [None]
  - INJURY [None]
  - INTERVERTEBRAL DISC DEGENERATION [None]
  - INTERVERTEBRAL DISC PROTRUSION [None]
  - JOINT SPRAIN [None]
  - LYMPHADENOPATHY [None]
  - LYMPHOEDEMA [None]
  - MANDIBULAR PROSTHESIS USER [None]
  - METASTASES TO BONE [None]
  - METASTASES TO LUNG [None]
  - METASTASES TO MOUTH [None]
  - MOUTH ULCERATION [None]
  - NEPHROLITHIASIS [None]
  - NEURALGIA [None]
  - NEUROPATHY PERIPHERAL [None]
  - OROANTRAL FISTULA [None]
  - OSTEITIS [None]
  - OSTEOARTHRITIS [None]
  - OSTEOMYELITIS [None]
  - OSTEONECROSIS OF JAW [None]
  - OSTEOPENIA [None]
  - OSTEOPOROSIS [None]
  - PAIN [None]
  - PAIN IN JAW [None]
  - PLEURAL EFFUSION [None]
  - RADICULOPATHY [None]
  - RENAL CYST [None]
  - RENAL FAILURE [None]
  - RENAL FAILURE CHRONIC [None]
  - SEPSIS [None]
  - SPONDYLOLISTHESIS [None]
  - TOOTH EXTRACTION [None]
  - VERTEBRAL FORAMINAL STENOSIS [None]
